FAERS Safety Report 24796403 (Version 1)
Quarter: 2025Q1

REPORT INFORMATION
  Report Type: Spontaneous
  Country: FR (occurrence: FR)
  Receive Date: 20250101
  Receipt Date: 20250101
  Transmission Date: 20250409
  Serious: Yes (Hospitalization)
  Sender: ACCORD
  Company Number: None

PATIENT
  Age: 66 Year
  Sex: Female
  Weight: 51 kg

DRUGS (5)
  1. BENDAMUSTINE [Suspect]
     Active Substance: BENDAMUSTINE
     Indication: Marginal zone lymphoma refractory
     Dosage: AT D1 AND D2
     Dates: start: 20230510, end: 20230802
  2. RITUXIMAB [Suspect]
     Active Substance: RITUXIMAB
     Indication: Marginal zone lymphoma stage IV
     Dates: start: 20230324, end: 20230802
  3. BACTRIM [Concomitant]
     Active Substance: SULFAMETHOXAZOLE\TRIMETHOPRIM
     Indication: Prophylaxis
     Dosage: 1 TABLET OF 800/160MG ON MONDAY/WEDNESDAY/FRIDAY
  4. VALACYCLOVIR HYDROCHLORIDE [Concomitant]
     Active Substance: VALACYCLOVIR HYDROCHLORIDE
     Indication: Prophylaxis
  5. FOLIC ACID [Concomitant]
     Active Substance: FOLIC ACID
     Indication: Prophylaxis
     Dosage: 1 TABLET OF 5MG ON TUESDAY/THURSDAY/SATURDAY

REACTIONS (2)
  - Breast cancer in situ [Recovered/Resolved with Sequelae]
  - Basal cell carcinoma [Recovered/Resolved]

NARRATIVE: CASE EVENT DATE: 20240301
